FAERS Safety Report 24005770 (Version 1)
Quarter: 2024Q2

REPORT INFORMATION
  Report Type: Spontaneous
  Country: US (occurrence: None)
  Receive Date: 20240623
  Receipt Date: 20240623
  Transmission Date: 20240716
  Serious: No
  Sender: FDA-Public Use
  Company Number: None

PATIENT
  Age: 27 Year
  Sex: Female
  Weight: 58.5 kg

DRUGS (12)
  1. DULOXETINE [Suspect]
     Active Substance: DULOXETINE
     Indication: Fibromyalgia
     Dosage: 1 CAPSULE DAILY ORAL
     Route: 048
     Dates: start: 20240622, end: 20240622
  2. TIZANIDINE [Concomitant]
     Active Substance: TIZANIDINE
  3. ONDANSETRON [Concomitant]
     Active Substance: ONDANSETRON
  4. DICYCLOMINE [Concomitant]
     Active Substance: DICYCLOMINE HYDROCHLORIDE
  5. HYOSCYAMINE [Concomitant]
  6. LORATADINE [Concomitant]
     Active Substance: LORATADINE
  7. OMEPRAZOLE [Concomitant]
     Active Substance: OMEPRAZOLE
  8. BELSOMRA [Concomitant]
     Active Substance: SUVOREXANT
  9. ALBUTEROL [Concomitant]
     Active Substance: ALBUTEROL
  10. BETAMETHASONE VALERATE [Concomitant]
     Active Substance: BETAMETHASONE VALERATE
  11. drospirenone-ethinyl estradiol [Concomitant]
  12. SUMATRIPTAN [Concomitant]
     Active Substance: SUMATRIPTAN

REACTIONS (16)
  - Dizziness [None]
  - Somnolence [None]
  - Asthenia [None]
  - Hot flush [None]
  - Feeling cold [None]
  - Nausea [None]
  - Vomiting [None]
  - Retching [None]
  - Brain fog [None]
  - Balance disorder [None]
  - Tremor [None]
  - Tremor [None]
  - Jaw disorder [None]
  - Musculoskeletal stiffness [None]
  - Throat tightness [None]
  - Decreased appetite [None]

NARRATIVE: CASE EVENT DATE: 20240622
